FAERS Safety Report 6969656-3 (Version None)
Quarter: 2010Q3

REPORT INFORMATION
  Report Type: 
  Country: None (occurrence: None)
  Receive Date: 20100902
  Receipt Date: 20100824
  Transmission Date: 20110219
  Serious: Yes (Other)
  Sender: FDA-Public Use
  Company Number: 2010SP002400

PATIENT
  Age: 17 Year
  Sex: Female
  Weight: 44 kg

DRUGS (5)
  1. CICLESONIDE HFA [Suspect]
     Indication: RHINITIS PERENNIAL
     Dosage: 160 UG;QD;INTRASINAL
     Dates: start: 20100420
  2. SPRINTEC [Concomitant]
  3. TYLENOL-500 [Concomitant]
  4. ZYRTEC /00884032/ [Concomitant]
  5. CLARITIN [Concomitant]

REACTIONS (1)
  - PYELONEPHRITIS ACUTE [None]
